FAERS Safety Report 26191565 (Version 1)
Quarter: 2025Q4

REPORT INFORMATION
  Report Type: Spontaneous
  Country: US (occurrence: US)
  Receive Date: 20251223
  Receipt Date: 20251223
  Transmission Date: 20260117
  Serious: No
  Sender: B. BRAUN MEDICAL INC.
  Company Number: None

PATIENT
  Age: 34 Year
  Sex: Female
  Weight: 66.68 kg

DRUGS (1)
  1. LACTATED RINGERS SOLUTION [Suspect]
     Active Substance: CALCIUM CHLORIDE\POTASSIUM CHLORIDE\SODIUM CHLORIDE\SODIUM LACTATE

REACTIONS (2)
  - Chills [Unknown]
  - Chills [Unknown]
